FAERS Safety Report 20739792 (Version 2)
Quarter: 2022Q2

REPORT INFORMATION
  Report Type: Report from Study
  Country: TW (occurrence: None)
  Receive Date: 20220422
  Receipt Date: 20220426
  Transmission Date: 20220721
  Serious: Yes (Death)
  Sender: FDA-Public Use
  Company Number: 2022A156522

PATIENT
  Age: 63 Year
  Sex: Female

DRUGS (1)
  1. FASLODEX [Suspect]
     Active Substance: FULVESTRANT
     Route: 030
     Dates: start: 202111

REACTIONS (4)
  - Obstructive airways disorder [Fatal]
  - Urinary tract infection [Fatal]
  - Renal failure [Fatal]
  - Neoplasm progression [Fatal]
